FAERS Safety Report 7000244-9 (Version None)
Quarter: 2010Q3

REPORT INFORMATION
  Report Type: 
  Country: None (occurrence: None)
  Receive Date: 20100920
  Receipt Date: 20090924
  Transmission Date: 20110219
  Serious: No
  Sender: FDA-Public Use
  Company Number: US-ASTRAZENECA-2009UW13710

PATIENT
  Age: 37 Year
  Sex: Female
  Weight: 79.4 kg

DRUGS (4)
  1. SEROQUEL [Suspect]
     Indication: BIPOLAR DISORDER
     Route: 048
     Dates: start: 20060101, end: 20080101
  2. SEROQUEL [Suspect]
     Indication: SCHIZOPHRENIA
     Route: 048
     Dates: start: 20060101, end: 20080101
  3. CLONAZEPAM [Concomitant]
  4. LITHIUM [Concomitant]

REACTIONS (3)
  - DIABETES MELLITUS [None]
  - GESTATIONAL DIABETES [None]
  - OBESITY [None]
